FAERS Safety Report 7124928-7 (Version None)
Quarter: 2010Q4

REPORT INFORMATION
  Report Type: 
  Country: None (occurrence: None)
  Receive Date: 20101129
  Receipt Date: 20101115
  Transmission Date: 20110411
  Serious: Yes (Other)
  Sender: FDA-Public Use
  Company Number: PHHY2010CA77976

PATIENT
  Sex: Male

DRUGS (3)
  1. ALISKIREN ALI+ [Suspect]
     Dosage: 300 MG
  2. CALCIUM ANTAGONIST [Concomitant]
  3. DIURETICS [Concomitant]

REACTIONS (1)
  - TRIGEMINAL NEURALGIA [None]
